FAERS Safety Report 13535585 (Version 1)
Quarter: 2017Q2

REPORT INFORMATION
  Report Type: Spontaneous
  Country: US (occurrence: US)
  Receive Date: 20170510
  Receipt Date: 20170510
  Transmission Date: 20170830
  Serious: No
  Sender: FDA-Public Use
  Company Number: None

PATIENT
  Age: 60 Year
  Sex: Male
  Weight: 80.56 kg

DRUGS (1)
  1. HYDROMORPHONE [Suspect]
     Active Substance: HYDROMORPHONE
     Dosage: 0.2 MG OTHER IV
     Route: 042
     Dates: start: 20170111, end: 20170113

REACTIONS (2)
  - Palpitations [None]
  - Heart rate irregular [None]

NARRATIVE: CASE EVENT DATE: 20170113
